FAERS Safety Report 4762705-2 (Version None)
Quarter: 2005Q3

REPORT INFORMATION
  Report Type: 
  Country: None (occurrence: None)
  Receive Date: 20050907
  Receipt Date: 20050825
  Transmission Date: 20060218
  Serious: Yes (Hospitalization)
  Sender: FDA-Public Use
  Company Number: JP-MERCK-0509USA00019

PATIENT
  Age: 19 Year
  Sex: Female

DRUGS (24)
  1. HALCION [Concomitant]
     Route: 048
  2. PROMETHAZINE HYDROCHLORIDE [Concomitant]
     Route: 048
  3. DORAL [Concomitant]
     Route: 048
  4. CERCINE [Concomitant]
     Route: 048
  5. THEO-DUR [Concomitant]
     Route: 048
  6. MEPTIN [Concomitant]
     Route: 048
  7. MUCODYNE [Concomitant]
     Route: 048
  8. ASVERIN [Concomitant]
     Route: 048
  9. FERO-GRADUMET [Concomitant]
     Route: 048
  10. CINAL [Concomitant]
     Route: 048
  11. ATARAX [Concomitant]
     Route: 048
  12. PURSENNID [Concomitant]
     Route: 048
  13. MUCOSTA [Concomitant]
     Route: 048
  14. NAUZELIN [Concomitant]
     Route: 048
  15. LEVOMEPROMAZINE [Concomitant]
     Route: 048
  16. LEXOTAN [Concomitant]
     Route: 048
  17. PAXIL [Concomitant]
     Route: 048
  18. PEPCID [Suspect]
     Route: 048
  19. TEGRETOL [Suspect]
     Route: 048
  20. DEPAS [Suspect]
     Route: 048
  21. ONON [Suspect]
     Route: 048
  22. VOLTAREN [Suspect]
     Route: 048
  23. ACETAMINOPHEN AND CAFFEINE AND PROMETHAZINE AND SALICYLAMIDE [Suspect]
     Route: 048
  24. INSUMIN [Concomitant]
     Route: 048

REACTIONS (3)
  - DRUG TOXICITY [None]
  - INTERSTITIAL LUNG DISEASE [None]
  - SUICIDE ATTEMPT [None]
